FAERS Safety Report 7505147-9 (Version None)
Quarter: 2011Q2

REPORT INFORMATION
  Report Type: 
  Country: None (occurrence: None)
  Receive Date: 20110526
  Receipt Date: 20110503
  Transmission Date: 20111010
  Serious: Yes (Hospitalization, Other)
  Sender: FDA-Public Use
  Company Number: US-BAYER-2010-004707

PATIENT
  Age: 19 Year
  Sex: Female
  Weight: 95.238 kg

DRUGS (4)
  1. YAZ [Suspect]
     Indication: CONTRACEPTION
     Dosage: UNK
     Dates: end: 20100112
  2. RANITIDINE [Concomitant]
     Dosage: UNK
     Dates: end: 20091213
  3. IBUPROFEN [Concomitant]
     Dosage: UNK
     Dates: start: 20071128
  4. ALLEGRA D 24 HOUR [Concomitant]
     Dosage: UNK, PRN

REACTIONS (9)
  - DEFORMITY [None]
  - ABDOMINAL PAIN [None]
  - CHOLELITHIASIS [None]
  - BILIARY COLIC [None]
  - GALLBLADDER DISORDER [None]
  - BACK PAIN [None]
  - HEPATITIS [None]
  - DISABILITY [None]
  - MENTAL DISORDER [None]
